FAERS Safety Report 5672659-2 (Version None)
Quarter: 2008Q1

REPORT INFORMATION
  Report Type: 
  Country: None (occurrence: None)
  Receive Date: 20080319
  Receipt Date: 20070926
  Transmission Date: 20080703
  Serious: No
  Sender: FDA-Public Use
  Company Number: US-KINGPHARMUSA00001-K200701251

PATIENT

DRUGS (4)
  1. ALTACE [Suspect]
     Indication: AORTIC ANEURYSM
     Dosage: 5 MG, QD
     Route: 048
     Dates: start: 20060101
  2. ALTACE [Suspect]
     Indication: HYPERTENSION
  3. PEPCID [Concomitant]
     Dosage: 10 MG, QD
     Route: 048
  4. LORAZEPAM [Concomitant]
     Indication: ANXIETY
     Dosage: 25 MG, PRN
     Route: 048

REACTIONS (1)
  - BLOOD PRESSURE INCREASED [None]
